FAERS Safety Report 5750199-X (Version None)
Quarter: 2008Q2

REPORT INFORMATION
  Report Type: 
  Country: None (occurrence: None)
  Receive Date: 20080527
  Receipt Date: 20080519
  Transmission Date: 20081010
  Serious: Yes (Hospitalization)
  Sender: FDA-Public Use
  Company Number: FR-ABBOTT-08P-056-0452653-00

PATIENT
  Sex: Female

DRUGS (6)
  1. ZECLAR [Suspect]
     Indication: LUNG DISORDER
     Route: 048
     Dates: start: 20080307, end: 20080309
  2. WARFARIN SODIUM [Interacting]
     Indication: PHLEBITIS
     Route: 048
     Dates: start: 20070601, end: 20080309
  3. AMOXI-CLAVULANICO [Interacting]
     Indication: LUNG DISORDER
     Route: 048
     Dates: start: 20080305, end: 20080321
  4. VERAPAMIL [Concomitant]
     Indication: DRUG USE FOR UNKNOWN INDICATION
     Route: 048
  5. OMEPRAZOLE [Concomitant]
     Indication: DRUG USE FOR UNKNOWN INDICATION
     Dates: start: 20080301
  6. ENOXAPARINE SODIC [Concomitant]
     Indication: DRUG USE FOR UNKNOWN INDICATION
     Dates: start: 20080301

REACTIONS (7)
  - COUGH [None]
  - DRUG INTERACTION [None]
  - HAEMATOCHEZIA [None]
  - HAEMATURIA [None]
  - INTERNATIONAL NORMALISED RATIO INCREASED [None]
  - PYREXIA [None]
  - SPUTUM PURULENT [None]
